FAERS Safety Report 9768681 (Version 4)
Quarter: 2014Q1

REPORT INFORMATION
  Report Type: Spontaneous
  Country: US (occurrence: US)
  Receive Date: 20131218
  Receipt Date: 20140325
  Transmission Date: 20141002
  Serious: Yes (Other)
  Sender: FDA-Public Use
  Company Number: US-BIOGENIDEC-2013BI119806

PATIENT
  Sex: Female

DRUGS (1)
  1. AVONEX [Suspect]
     Indication: MULTIPLE SCLEROSIS
     Route: 030
     Dates: start: 20050405

REACTIONS (4)
  - Myocardial infarction [Not Recovered/Not Resolved]
  - Coronary artery disease [Recovered/Resolved]
  - Enterocolitis [Not Recovered/Not Resolved]
  - Mobility decreased [Not Recovered/Not Resolved]
